FAERS Safety Report 6449701-4 (Version None)
Quarter: 2009Q4

REPORT INFORMATION
  Report Type: 
  Country: None (occurrence: None)
  Receive Date: 20091120
  Receipt Date: 20091110
  Transmission Date: 20100525
  Serious: Yes (Death, Hospitalization)
  Sender: FDA-Public Use
  Company Number: JP-AMGEN-US349134

PATIENT
  Sex: Male
  Weight: 70 kg

DRUGS (14)
  1. ENBREL [Suspect]
     Indication: RHEUMATOID ARTHRITIS
     Route: 058
     Dates: start: 20081022, end: 20090207
  2. RHEUMATREX [Suspect]
     Route: 048
     Dates: end: 20090510
  3. AZULFIDINE [Concomitant]
     Route: 048
     Dates: end: 20090601
  4. MOBIC [Concomitant]
     Route: 048
     Dates: end: 20090601
  5. PREDNISOLONE [Concomitant]
     Route: 048
     Dates: end: 20080501
  6. PREDNISOLONE [Concomitant]
     Route: 048
     Dates: start: 20080501
  7. MYONAL [Concomitant]
     Route: 048
     Dates: end: 20090601
  8. AMARYL [Concomitant]
     Route: 048
     Dates: end: 20090517
  9. RANITIDINE HYDROCHLORIDE [Concomitant]
     Route: 048
     Dates: end: 20090601
  10. METHAPHYLLIN [Concomitant]
     Route: 048
  11. PARAPROST [Concomitant]
     Route: 048
     Dates: end: 20090601
  12. CARBOCISTEINE [Concomitant]
     Route: 048
     Dates: end: 20090601
  13. RIMATIL [Concomitant]
     Route: 048
     Dates: end: 20090414
  14. INSULIN [Concomitant]
     Dosage: UNSPECIFIED
     Route: 042

REACTIONS (6)
  - ACUTE RESPIRATORY DISTRESS SYNDROME [None]
  - BURKHOLDERIA CEPACIA COMPLEX INFECTION [None]
  - PNEUMONIA [None]
  - PNEUMOTHORAX [None]
  - PSEUDOMONAS INFECTION [None]
  - SPUTUM CULTURE POSITIVE [None]
